FAERS Safety Report 6111648-0 (Version None)
Quarter: 2009Q1

REPORT INFORMATION
  Report Type: 
  Country: None (occurrence: None)
  Receive Date: 20090311
  Receipt Date: 20090226
  Transmission Date: 20090719
  Serious: Yes (Other)
  Sender: FDA-Public Use
  Company Number: US-PFIZER INC-2009176397

PATIENT

DRUGS (1)
  1. GEODON [Suspect]
     Dosage: 40 MG, 2X/DAY
     Route: 048

REACTIONS (1)
  - GASTROSTOMY TUBE INSERTION [None]
